FAERS Safety Report 25723671 (Version 3)
Quarter: 2025Q4

REPORT INFORMATION
  Report Type: Spontaneous
  Country: JP (occurrence: JP)
  Receive Date: 20250825
  Receipt Date: 20251128
  Transmission Date: 20260118
  Serious: Yes (Death, Hospitalization, Other)
  Sender: NOVARTIS
  Company Number: JP-002147023-NVSJ2025JP008364

PATIENT
  Age: 78 Year
  Sex: Female

DRUGS (5)
  1. TAFINLAR [Suspect]
     Active Substance: DABRAFENIB MESYLATE
     Indication: Papillary thyroid cancer
     Dosage: 150 MG, BID
     Route: 048
     Dates: start: 20250715, end: 20250723
  2. TAFINLAR [Suspect]
     Active Substance: DABRAFENIB MESYLATE
     Indication: BRAF V600E mutation positive
  3. MEKINIST [Suspect]
     Active Substance: TRAMETINIB DIMETHYL SULFOXIDE
     Indication: Papillary thyroid cancer
     Dosage: 2 MG, QD
     Route: 048
     Dates: start: 20250715, end: 20250723
  4. MEKINIST [Suspect]
     Active Substance: TRAMETINIB DIMETHYL SULFOXIDE
     Indication: BRAF V600E mutation positive
  5. AMLODIPINE [Concomitant]
     Active Substance: AMLODIPINE BESYLATE
     Indication: Hypertension
     Dosage: UNK
     Route: 065

REACTIONS (6)
  - Death [Fatal]
  - Encephalopathy [Recovering/Resolving]
  - Hemiplegia [Recovering/Resolving]
  - Altered state of consciousness [Unknown]
  - Pyrexia [Recovered/Resolved]
  - Dysphagia [Unknown]

NARRATIVE: CASE EVENT DATE: 20250715
